FAERS Safety Report 11395157 (Version 4)
Quarter: 2015Q4

REPORT INFORMATION
  Report Type: Spontaneous
  Country: US (occurrence: US)
  Receive Date: 20150819
  Receipt Date: 20151104
  Transmission Date: 20160304
  Serious: Yes (Other)
  Sender: FDA-Public Use
  Company Number: US-PFIZER INC-2015262167

PATIENT
  Age: 63 Year
  Sex: Female
  Weight: 93.42 kg

DRUGS (3)
  1. IBRANCE [Suspect]
     Active Substance: PALBOCICLIB
     Indication: BREAST CANCER
     Dosage: 125 MG, D1-D21 EVERY 28 DAYS
     Route: 048
     Dates: start: 20150718
  2. IBRANCE [Suspect]
     Active Substance: PALBOCICLIB
     Dosage: UNK
  3. IBRANCE [Suspect]
     Active Substance: PALBOCICLIB
     Dosage: UNK

REACTIONS (12)
  - Fatigue [Unknown]
  - Weight decreased [Unknown]
  - Peripheral swelling [Unknown]
  - Dysphonia [Unknown]
  - Disease progression [Unknown]
  - White blood cell count decreased [Unknown]
  - Nasopharyngitis [Unknown]
  - Cough [Unknown]
  - Breast cancer [Unknown]
  - Nausea [Unknown]
  - Respiratory tract congestion [Unknown]
  - Oropharyngeal pain [Recovered/Resolved]

NARRATIVE: CASE EVENT DATE: 2015
